FAERS Safety Report 19811180 (Version 1)
Quarter: 2021Q3

REPORT INFORMATION
  Report Type: Spontaneous
  Country: US (occurrence: US)
  Receive Date: 20210910
  Receipt Date: 20210910
  Transmission Date: 20211014
  Serious: No
  Sender: FDA-Public Use
  Company Number: US-ROCHE-2792348

PATIENT
  Age: 32 Year
  Sex: Female
  Weight: 61.65 kg

DRUGS (2)
  1. ASA [Concomitant]
     Active Substance: ASPIRIN
     Indication: PERIARTHRITIS
     Route: 048
     Dates: start: 20190319
  2. PEGASYS [Suspect]
     Active Substance: PEGINTERFERON ALFA-2A
     Indication: THROMBOCYTOSIS
     Dosage: STRENGTH: 180 MCG/ML SINGAL DOSE VIAL
     Route: 058
     Dates: start: 20210126

REACTIONS (4)
  - Maternal exposure timing unspecified [Unknown]
  - Pruritus [Not Recovered/Not Resolved]
  - Off label use [Unknown]
  - Burning sensation [Not Recovered/Not Resolved]

NARRATIVE: CASE EVENT DATE: 20210315
